FAERS Safety Report 7153882-7 (Version None)
Quarter: 2010Q4

REPORT INFORMATION
  Report Type: 
  Country: None (occurrence: None)
  Receive Date: 20101129
  Receipt Date: 20101115
  Transmission Date: 20110411
  Serious: Yes (Other)
  Sender: FDA-Public Use
  Company Number: 021967

PATIENT
  Sex: Female

DRUGS (4)
  1. CIMZIA [Suspect]
     Indication: RHEUMATOID ARTHRITIS
     Dosage: SUBCUTANEOUS
     Route: 058
     Dates: start: 20100101
  2. ENBREL [Suspect]
     Indication: POLYARTHRITIS
     Dosage: 50 MG WEEKLY
     Dates: start: 20100223, end: 20100101
  3. ENBREL [Suspect]
     Indication: RHEUMATOID ARTHRITIS
     Dosage: 50 MG WEEKLY
     Dates: start: 20100223, end: 20100101
  4. GLUCOCORTICOIDS [Concomitant]

REACTIONS (3)
  - ANKLE FRACTURE [None]
  - OSTEOPOROSIS [None]
  - PATHOLOGICAL FRACTURE [None]
